FAERS Safety Report 10017259 (Version 1)
Quarter: 2014Q1

REPORT INFORMATION
  Report Type: Spontaneous
  Country: US (occurrence: US)
  Receive Date: 20140318
  Receipt Date: 20140318
  Transmission Date: 20141002
  Serious: No
  Sender: FDA-Public Use
  Company Number: US-SHIRE-US201400565

PATIENT
  Sex: 0

DRUGS (2)
  1. VYVANSE [Suspect]
     Indication: PRODUCT USED FOR UNKNOWN INDICATION
     Dosage: 70 MG, UNKNOWN
     Route: 048
     Dates: start: 2014
  2. VYVANSE [Suspect]
     Dosage: 60 MG, UNKNOWN
     Route: 048
     Dates: end: 2014

REACTIONS (2)
  - Anxiety [Unknown]
  - Decreased appetite [Unknown]
